FAERS Safety Report 16001043 (Version 6)
Quarter: 2019Q3

REPORT INFORMATION
  Report Type: Spontaneous
  Country: US (occurrence: US)
  Receive Date: 20190225
  Receipt Date: 20190903
  Transmission Date: 20191004
  Serious: Yes (Other)
  Sender: FDA-Public Use
  Company Number: US-ASTRAZENECA-2018SF26085

PATIENT
  Age: 63 Year
  Sex: Male

DRUGS (20)
  1. PREDNISONE. [Concomitant]
     Active Substance: PREDNISONE
  2. PRILOSEC OTC [Suspect]
     Active Substance: OMEPRAZOLE MAGNESIUM
     Route: 048
  3. DICYCLOMINE [Concomitant]
     Active Substance: DICYCLOMINE HYDROCHLORIDE
  4. PREVACID 24 HR [Suspect]
     Active Substance: LANSOPRAZOLE
     Route: 065
  5. ATENOLOL. [Concomitant]
     Active Substance: ATENOLOL
  6. BACLOFEN. [Concomitant]
     Active Substance: BACLOFEN
  7. CIPROFLOXACIN. [Concomitant]
     Active Substance: CIPROFLOXACIN
  8. CYCLOBENZAPRINE. [Concomitant]
     Active Substance: CYCLOBENZAPRINE
  9. FLUCONAZOLE. [Concomitant]
     Active Substance: FLUCONAZOLE
  10. GABAPENTIN. [Concomitant]
     Active Substance: GABAPENTIN
  11. PRILOSEC [Suspect]
     Active Substance: OMEPRAZOLE MAGNESIUM
     Indication: GASTROOESOPHAGEAL REFLUX DISEASE
     Route: 048
     Dates: start: 1998, end: 2018
  12. NEXIUM [Suspect]
     Active Substance: ESOMEPRAZOLE MAGNESIUM
     Route: 048
  13. METHYLPREDNISOLONE. [Concomitant]
     Active Substance: METHYLPREDNISOLONE
  14. PRILOSEC [Suspect]
     Active Substance: OMEPRAZOLE MAGNESIUM
     Indication: GASTROOESOPHAGEAL REFLUX DISEASE
     Dosage: GENERIC
     Route: 065
     Dates: start: 19981115, end: 20180523
  15. PRILOSEC [Suspect]
     Active Substance: OMEPRAZOLE MAGNESIUM
     Indication: GASTROOESOPHAGEAL REFLUX DISEASE
     Dosage: GENERIC, 40 MG, UNKNOWN
     Route: 065
     Dates: start: 2018
  16. ALBUTEROL. [Concomitant]
     Active Substance: ALBUTEROL
  17. METRONIDAZOLE. [Concomitant]
     Active Substance: METRONIDAZOLE
  18. NEXIUM 24HR [Suspect]
     Active Substance: ESOMEPRAZOLE MAGNESIUM
     Route: 048
  19. PREVACID [Suspect]
     Active Substance: LANSOPRAZOLE
     Route: 065
  20. DOXYCYCLINE. [Concomitant]
     Active Substance: DOXYCYCLINE

REACTIONS (4)
  - Renal injury [Unknown]
  - Hyperparathyroidism secondary [Unknown]
  - Acute kidney injury [Unknown]
  - Chronic kidney disease [Not Recovered/Not Resolved]

NARRATIVE: CASE EVENT DATE: 2014
